FAERS Safety Report 5844318-4 (Version None)
Quarter: 2008Q3

REPORT INFORMATION
  Report Type: 
  Country: None (occurrence: None)
  Receive Date: 20080813
  Receipt Date: 20080807
  Transmission Date: 20090109
  Serious: Yes (Other)
  Sender: FDA-Public Use
  Company Number: TH-BOEHRINGER INGELHEIM GMBH, GERMANY-2007-DE-01301GD

PATIENT

DRUGS (9)
  1. NEVIRAPINE [Suspect]
     Indication: HIV INFECTION
     Route: 048
  2. NEVIRAPINE [Suspect]
     Route: 048
  3. NEVIRAPINE [Suspect]
     Indication: HIV INFECTION
     Route: 048
  4. ZIDOVUDINE [Suspect]
     Indication: HIV INFECTION
     Route: 048
  5. LAMIVUDINE [Suspect]
     Indication: HIV INFECTION
     Route: 048
  6. RIFAMPICIN [Concomitant]
     Indication: TUBERCULOSIS
  7. ISONIAZID [Concomitant]
     Indication: TUBERCULOSIS
  8. ETHAMBUTOL HCL [Concomitant]
     Indication: TUBERCULOSIS
  9. PYRAZINAMIDE [Concomitant]
     Indication: TUBERCULOSIS

REACTIONS (2)
  - IMMUNE RECONSTITUTION SYNDROME [None]
  - TUBERCULOSIS [None]
